FAERS Safety Report 4507179-1 (Version None)
Quarter: 2004Q4

REPORT INFORMATION
  Report Type: 
  Country: None (occurrence: None)
  Receive Date: 20041025
  Receipt Date: 20040622
  Transmission Date: 20050328
  Serious: Yes (Hospitalization)
  Sender: FDA-Public Use
  Company Number: US-JNJFOC-20040504467

PATIENT
  Age: 14 Year
  Sex: Female
  Weight: 49.4421 kg

DRUGS (4)
  1. REMICADE [Suspect]
     Indication: CROHN'S DISEASE
     Dosage: INTRAVENOUS; 300 MG, I NTRAVENOUS
     Route: 042
     Dates: start: 20030710
  2. REMICADE [Suspect]
     Indication: CROHN'S DISEASE
     Dosage: INTRAVENOUS; 300 MG, I NTRAVENOUS
     Route: 042
     Dates: start: 20040512
  3. REMICADE [Suspect]
     Indication: CROHN'S DISEASE
     Dosage: INTRAVENOUS; 300 MG, I NTRAVENOUS
     Route: 042
     Dates: start: 20040612
  4. PREDNISONE [Concomitant]

REACTIONS (1)
  - PANCREATITIS [None]
